FAERS Safety Report 13438936 (Version 1)
Quarter: 2017Q2

REPORT INFORMATION
  Report Type: Spontaneous
  Country: US (occurrence: US)
  Receive Date: 20170413
  Receipt Date: 20170413
  Transmission Date: 20170830
  Serious: No
  Sender: FDA-Public Use
  Company Number: US-ROCHE-1132923

PATIENT
  Sex: Female

DRUGS (6)
  1. TORADOL [Suspect]
     Active Substance: KETOROLAC TROMETHAMINE
     Indication: PRODUCT USED FOR UNKNOWN INDICATION
  2. ROCEPHIN [Suspect]
     Active Substance: CEFTRIAXONE SODIUM
     Indication: PRODUCT USED FOR UNKNOWN INDICATION
  3. LEVOTHYROXIN [Concomitant]
     Active Substance: LEVOTHYROXINE
  4. CYMBALTA [Concomitant]
     Active Substance: DULOXETINE HYDROCHLORIDE
  5. LIPITOR [Concomitant]
     Active Substance: ATORVASTATIN CALCIUM
  6. OMEPRAZOLE. [Concomitant]
     Active Substance: OMEPRAZOLE

REACTIONS (1)
  - Hypersensitivity [Unknown]
